FAERS Safety Report 25795860 (Version 1)
Quarter: 2025Q3

REPORT INFORMATION
  Report Type: Spontaneous
  Country: US (occurrence: None)
  Receive Date: 20250911
  Receipt Date: 20250911
  Transmission Date: 20251020
  Serious: Yes (Other)
  Sender: FDA-CTU
  Company Number: None

PATIENT
  Age: 52 Year
  Sex: Female
  Weight: 50.4 kg

DRUGS (1)
  1. LAMOTRIGINE [Suspect]
     Active Substance: LAMOTRIGINE
     Dosage: FREQUENCY : DAILY;?
     Route: 048
     Dates: start: 20221122, end: 20230801

REACTIONS (2)
  - Rash [None]
  - Swelling [None]

NARRATIVE: CASE EVENT DATE: 20230801
